FAERS Safety Report 4537374-7 (Version None)
Quarter: 2004Q4

REPORT INFORMATION
  Report Type: 
  Country: None (occurrence: None)
  Receive Date: 20041223
  Receipt Date: 20041026
  Transmission Date: 20050328
  Serious: Yes (Hospitalization)
  Sender: FDA-Public Use
  Company Number: CA-ABBOTT-04P-028-0278964-00

PATIENT
  Sex: Female
  Weight: 51 kg

DRUGS (28)
  1. HUMIRA [Suspect]
     Indication: RHEUMATOID ARTHRITIS
     Dates: start: 20040513, end: 20040722
  2. HUMIRA [Suspect]
     Dates: start: 20040901, end: 20040915
  3. OMEPRAZOLE [Concomitant]
     Indication: HIATUS HERNIA
     Route: 048
     Dates: start: 19930101, end: 20041025
  4. OMEPRAZOLE [Concomitant]
     Indication: DYSPEPSIA
  5. CELECOXIB [Concomitant]
     Indication: RHEUMATOID ARTHRITIS
     Route: 048
     Dates: start: 19960101
  6. HYDROXYCHLOROQUINE PHOSPHATE [Concomitant]
     Indication: RHEUMATOID ARTHRITIS
     Route: 048
     Dates: start: 19830630
  7. METHOTREXATE [Concomitant]
     Indication: RHEUMATOID ARTHRITIS
     Route: 048
     Dates: start: 20021101
  8. FOLIC ACID [Concomitant]
     Indication: RHEUMATOID ARTHRITIS
     Route: 048
     Dates: start: 20030101
  9. PILOCARPINE HYDROCHLORIDE [Concomitant]
     Indication: SJOGREN'S SYNDROME
     Route: 048
     Dates: start: 20020101
  10. CARBAMAZEPINE [Concomitant]
     Indication: SCIATICA
     Route: 048
     Dates: start: 20040401
  11. CLONAZEPAM [Concomitant]
     Indication: INSOMNIA
     Route: 048
     Dates: start: 20020101
  12. CETIRIZINE HCL [Concomitant]
     Indication: SEASONAL ALLERGY
     Route: 048
     Dates: start: 19900101
  13. PARACETAMOL [Concomitant]
     Indication: RHEUMATOID ARTHRITIS
     Route: 048
     Dates: start: 19900101
  14. MULTI-VITAMINS [Concomitant]
     Indication: NUTRITIONAL SUPPORT
     Route: 048
     Dates: start: 19860101
  15. CALCIUM [Concomitant]
     Indication: NUTRITIONAL SUPPORT
     Route: 048
     Dates: start: 19860101
  16. TEARS NATURALE [Concomitant]
     Indication: SJOGREN'S SYNDROME
     Dates: start: 19840101
  17. ETANERCEPT [Concomitant]
     Indication: RHEUMATOID ARTHRITIS
     Route: 058
     Dates: start: 20030828, end: 20040413
  18. ZITHROMAX [Concomitant]
     Indication: SINUSITIS
     Route: 048
     Dates: start: 20040603, end: 20040603
  19. ZITHROMAX [Concomitant]
     Route: 048
     Dates: start: 20040604, end: 20040607
  20. BENYLIN DM [Concomitant]
     Indication: COUGH
     Route: 048
     Dates: start: 20040705
  21. GABAPENTIN [Concomitant]
     Indication: HIP ARTHROPLASTY
     Route: 048
     Dates: start: 20041024
  22. TOBRAMYCIN [Concomitant]
     Indication: BRONCHIECTASIS
     Route: 042
     Dates: start: 20041025, end: 20041107
  23. PIP/TAZO [Concomitant]
     Indication: BRONCHIECTASIS
     Route: 042
     Dates: start: 20041025, end: 20041108
  24. PANTOPRAZOLE SODIUM [Concomitant]
     Indication: HIATUS HERNIA
     Route: 048
     Dates: start: 20041026
  25. PANTOPRAZOLE SODIUM [Concomitant]
     Indication: DYSPEPSIA
  26. FLAGYL [Concomitant]
     Indication: BRONCHIECTASIS
     Route: 048
     Dates: start: 20041031, end: 20041107
  27. NYSTATIN [Concomitant]
     Indication: SMEAR BUCCAL ABNORMAL
     Route: 048
     Dates: start: 20041101
  28. ALBUTEROL [Concomitant]
     Indication: BRONCHIECTASIS
     Dosage: 2-4 INHALATIONS
     Route: 055
     Dates: start: 20041105

REACTIONS (6)
  - BRONCHIECTASIS [None]
  - DIARRHOEA [None]
  - PNEUMONITIS [None]
  - PSEUDOMONAS INFECTION [None]
  - SINUSITIS [None]
  - SPUTUM CULTURE POSITIVE [None]
